FAERS Safety Report 6844774-9 (Version None)
Quarter: 2010Q3

REPORT INFORMATION
  Report Type: 
  Country: None (occurrence: None)
  Receive Date: 20100715
  Receipt Date: 20100705
  Transmission Date: 20110219
  Serious: Yes (Hospitalization)
  Sender: FDA-Public Use
  Company Number: GXKR2010BR07560

PATIENT
  Sex: Male

DRUGS (5)
  1. ENALAPRIL MALEATE [Suspect]
     Indication: CARDIAC FAILURE
     Dosage: 1 DF, BID
     Route: 048
  2. CIPROFLOXACIN [Suspect]
     Indication: LUNG INFECTION
     Dosage: BID
     Route: 048
     Dates: start: 20100610
  3. CARVEDILOL [Concomitant]
     Indication: CARDIAC FAILURE
     Dosage: 0.5 DF/DAY
     Route: 048
  4. A/H1N1 INFLUENZA PANDEMIC VACCINE [Concomitant]
     Dosage: UNK
     Route: 065
     Dates: start: 20100430
  5. INFLUENZA VACCINE [Concomitant]
     Dosage: UNK
     Route: 065
     Dates: start: 20100430

REACTIONS (10)
  - CEREBROVASCULAR ACCIDENT [None]
  - COUGH [None]
  - DYSPNOEA [None]
  - EAR INFECTION [None]
  - EAR PAIN [None]
  - INFLUENZA [None]
  - LABYRINTHITIS [None]
  - LUNG DISORDER [None]
  - PAIN [None]
  - WEIGHT DECREASED [None]
